FAERS Safety Report 19273043 (Version 9)
Quarter: 2021Q4

REPORT INFORMATION
  Report Type: Report from Study
  Country: US (occurrence: US)
  Receive Date: 20210518
  Receipt Date: 20211222
  Transmission Date: 20220303
  Serious: Yes (Other)
  Sender: FDA-Public Use
  Company Number: US-NOVARTISPH-NVSC2021US111000

PATIENT

DRUGS (2)
  1. ENTRESTO [Suspect]
     Active Substance: SACUBITRIL\VALSARTAN
     Indication: Product used for unknown indication
     Dosage: UNK UNK, BID
     Route: 048
     Dates: start: 202104
  2. ENTRESTO [Suspect]
     Active Substance: SACUBITRIL\VALSARTAN
     Dosage: DOSE DOUBLED
     Route: 048

REACTIONS (11)
  - Diabetes mellitus [Unknown]
  - Atrial fibrillation [Unknown]
  - Dyspnoea [Unknown]
  - Blood glucose decreased [Unknown]
  - Weight decreased [Unknown]
  - Paraesthesia [Unknown]
  - Pain in extremity [Unknown]
  - Gait disturbance [Unknown]
  - Weight increased [Unknown]
  - Feeling abnormal [Unknown]
  - Cardiac disorder [Unknown]
